FAERS Safety Report 12451224 (Version 2)
Quarter: 2016Q2

REPORT INFORMATION
  Report Type: Report from Study
  Country: JP (occurrence: JP)
  Receive Date: 20160609
  Receipt Date: 20160630
  Transmission Date: 20160815
  Serious: Yes (Death, Other)
  Sender: FDA-Public Use
  Company Number: JP-B.I. PHARMACEUTICALS,INC./RIDGEFIELD-2016-BI-36652NB

PATIENT
  Age: 75 Year
  Sex: Female
  Weight: 44.3 kg

DRUGS (12)
  1. AMBROXOL HYDROCHLORIDE [Concomitant]
     Active Substance: AMBROXOL HYDROCHLORIDE
     Indication: PRODUCT USED FOR UNKNOWN INDICATION
     Dosage: 45 MG
     Route: 065
  2. NEXIUM [Concomitant]
     Active Substance: ESOMEPRAZOLE MAGNESIUM
     Indication: PRODUCT USED FOR UNKNOWN INDICATION
     Dosage: 20 MG
     Route: 065
  3. METGLUCO [Concomitant]
     Active Substance: METFORMIN HYDROCHLORIDE
     Indication: PRODUCT USED FOR UNKNOWN INDICATION
     Dosage: 500 MG
     Route: 065
     Dates: end: 20160409
  4. TSUMURA KAKKONTO EXTRACT GRANULES FOR ETHICAL USE [Concomitant]
     Indication: PRODUCT USED FOR UNKNOWN INDICATION
     Dosage: 7.5 G
     Route: 065
  5. BONALON [Concomitant]
     Active Substance: ALENDRONATE SODIUM
     Indication: PRODUCT USED FOR UNKNOWN INDICATION
     Dosage: 35 MG
     Route: 065
  6. GLACTIV [Concomitant]
     Active Substance: SITAGLIPTIN
     Indication: PRODUCT USED FOR UNKNOWN INDICATION
     Dosage: 50 MG
     Route: 065
  7. GASTROM [Concomitant]
     Active Substance: ECABET
     Indication: PRODUCT USED FOR UNKNOWN INDICATION
     Dosage: 3 G
     Route: 065
     Dates: end: 20160208
  8. PREDONINE [Concomitant]
     Active Substance: PREDNISOLONE\PREDNISOLONE ACETATE\PREDNISOLONE SODIUM SUCCINATE
     Indication: IDIOPATHIC PULMONARY FIBROSIS
     Dosage: 10 MG
     Route: 065
     Dates: end: 20160530
  9. CELECOX [Concomitant]
     Active Substance: CELECOXIB
     Indication: PRODUCT USED FOR UNKNOWN INDICATION
     Dosage: 200 MG
     Route: 065
  10. OFEV [Suspect]
     Active Substance: NINTEDANIB
     Indication: IDIOPATHIC PULMONARY FIBROSIS
     Dosage: 300 MG
     Route: 065
     Dates: start: 20151029, end: 20160202
  11. OFEV [Suspect]
     Active Substance: NINTEDANIB
     Dosage: 200 MG
     Route: 065
     Dates: start: 20160202, end: 20160223
  12. BAKTAR [Concomitant]
     Active Substance: SULFAMETHOXAZOLE\TRIMETHOPRIM
     Indication: PRODUCT USED FOR UNKNOWN INDICATION
     Route: 065

REACTIONS (3)
  - Pneumomediastinum [Fatal]
  - Liver disorder [Recovered/Resolved]
  - Decreased appetite [Recovered/Resolved]

NARRATIVE: CASE EVENT DATE: 20160202
